FAERS Safety Report 9329812 (Version 1)
Quarter: 2013Q2

REPORT INFORMATION
  Report Type: Spontaneous
  Country: US (occurrence: US)
  Receive Date: 20130604
  Receipt Date: 20130604
  Transmission Date: 20140414
  Serious: No
  Sender: FDA-Public Use
  Company Number: US-SANOFI-AVENTIS-2013SA003196

PATIENT
  Age: 94 Year
  Sex: Female

DRUGS (7)
  1. LANTUS [Suspect]
     Indication: MYALGIA
     Dosage: DOSE:10 UNIT(S)
  2. LANTUS [Suspect]
     Indication: MYALGIA
     Dosage: 11 UNITS IN THE AM AND 11 UNITS IN THE PM
  3. LANTUS [Suspect]
     Indication: MYALGIA
  4. PLAVIX [Suspect]
  5. PLAVIX [Suspect]
  6. PREDNISONE [Suspect]
  7. HUMALOG [Concomitant]

REACTIONS (1)
  - Abdominal distension [Not Recovered/Not Resolved]
